FAERS Safety Report 13949711 (Version 1)
Quarter: 2017Q3

REPORT INFORMATION
  Report Type: Spontaneous
  Country: FR (occurrence: FR)
  Receive Date: 20170908
  Receipt Date: 20170908
  Transmission Date: 20171128
  Serious: Yes (Life-Threatening, Other)
  Sender: FDA-Public Use
  Company Number: FR-ABBVIE-17P-056-2096668-00

PATIENT
  Age: 26 Year
  Sex: Male

DRUGS (7)
  1. RISPERIDONE (RISPERIDONE) [Concomitant]
     Active Substance: RISPERIDONE
     Indication: PRODUCT USED FOR UNKNOWN INDICATION
     Route: 065
  2. DEPAKINE [Suspect]
     Active Substance: VALPROATE SODIUM
     Route: 048
     Dates: start: 20170810, end: 20170810
  3. TERCIAN (CYAMEMAZINE) [Suspect]
     Active Substance: CYAMEMAZINE
     Indication: SCHIZOPHRENIA
     Route: 048
     Dates: start: 20170806, end: 20170807
  4. DEPAKINE [Suspect]
     Active Substance: VALPROATE SODIUM
     Indication: SCHIZOPHRENIA
     Route: 048
     Dates: start: 20170806, end: 20170807
  5. TERCIAN (CYAMEMAZINE) [Suspect]
     Active Substance: CYAMEMAZINE
     Route: 048
     Dates: start: 20170810, end: 20170810
  6. AKINETON [Concomitant]
     Active Substance: BIPERIDEN HYDROCHLORIDE
     Indication: PRODUCT USED FOR UNKNOWN INDICATION
     Route: 065
  7. THERALENE (ALIMEMAZINE TARTRATE) [Concomitant]
     Active Substance: TRIMEPRAZINE TARTRATE
     Indication: PRODUCT USED FOR UNKNOWN INDICATION
     Route: 065

REACTIONS (3)
  - Coma [Recovered/Resolved]
  - Thrombocytopenia [Recovering/Resolving]
  - Product use in unapproved indication [Unknown]

NARRATIVE: CASE EVENT DATE: 20170809
